FAERS Safety Report 20323863 (Version 3)
Quarter: 2022Q1

REPORT INFORMATION
  Report Type: Spontaneous
  Country: MX (occurrence: MX)
  Receive Date: 20220111
  Receipt Date: 20220324
  Transmission Date: 20220424
  Serious: Yes (Hospitalization, Other)
  Sender: FDA-Public Use
  Company Number: MX-LUPIN PHARMACEUTICALS INC.-2021-26755

PATIENT
  Age: 19 Year
  Sex: Female

DRUGS (2)
  1. LEVOTHYROXINE [Suspect]
     Active Substance: LEVOTHYROXINE
     Indication: Autoimmune hypothyroidism
     Dosage: 50 MICROGRAM, QD
     Route: 065
  2. LEVOTHYROXINE [Suspect]
     Active Substance: LEVOTHYROXINE
     Dosage: 25 MICROGRAM, QD
     Route: 065

REACTIONS (2)
  - Hyperthyroidism [Recovered/Resolved]
  - Superior mesenteric artery syndrome [Recovered/Resolved]
